FAERS Safety Report 24878583 (Version 1)
Quarter: 2025Q1

REPORT INFORMATION
  Report Type: Spontaneous
  Country: US (occurrence: None)
  Receive Date: 20250122
  Receipt Date: 20250122
  Transmission Date: 20250409
  Serious: Yes (Hospitalization)
  Sender: FDA-CTU
  Company Number: None

PATIENT
  Age: 89 Year
  Sex: Male

DRUGS (1)
  1. APIXABAN [Suspect]
     Active Substance: APIXABAN
     Indication: Atrial fibrillation

REACTIONS (11)
  - Gastrointestinal haemorrhage [None]
  - Abdominal pain [None]
  - Melaena [None]
  - Blood loss anaemia [None]
  - Blood urea increased [None]
  - Blood creatinine increased [None]
  - Peptic ulcer [None]
  - Gastritis [None]
  - Arteriovenous malformation [None]
  - Dieulafoy^s vascular malformation [None]
  - Neoplasm malignant [None]

NARRATIVE: CASE EVENT DATE: 20250116
